FAERS Safety Report 7769199-3 (Version None)
Quarter: 2011Q3

REPORT INFORMATION
  Report Type: 
  Country: None (occurrence: None)
  Receive Date: 20110922
  Receipt Date: 20110915
  Transmission Date: 20111222
  Serious: Yes (Death, Hospitalization)
  Sender: FDA-Public Use
  Company Number: JP-ROCHE-729732

PATIENT
  Sex: Female

DRUGS (20)
  1. PREDNISOLONE [Suspect]
     Route: 048
     Dates: start: 20080710, end: 20081103
  2. TOCILIZUMAB [Suspect]
     Route: 042
     Dates: start: 20090212, end: 20090212
  3. PREDNISOLONE [Suspect]
     Route: 048
     Dates: start: 20080627, end: 20080703
  4. TOCILIZUMAB [Suspect]
     Route: 042
     Dates: start: 20090107, end: 20090107
  5. PREDNISOLONE [Suspect]
     Route: 048
     Dates: start: 20090122
  6. CONFATANIN [Concomitant]
     Route: 048
     Dates: start: 20081204
  7. TOCILIZUMAB [Suspect]
     Route: 042
     Dates: start: 20081104, end: 20081104
  8. TOCILIZUMAB [Suspect]
     Route: 042
     Dates: start: 20090408, end: 20090408
  9. PREDNISOLONE [Suspect]
     Route: 048
     Dates: start: 20081204, end: 20090106
  10. PREDNISOLONE [Suspect]
     Route: 048
     Dates: start: 20090107, end: 20090121
  11. TOCILIZUMAB [Suspect]
     Indication: RHEUMATOID ARTHRITIS
     Route: 042
     Dates: start: 20080905, end: 20080905
  12. TOCILIZUMAB [Suspect]
     Route: 042
     Dates: start: 20081204, end: 20081204
  13. TOCILIZUMAB [Suspect]
     Route: 042
     Dates: start: 20090311, end: 20090311
  14. PREDNISOLONE [Suspect]
     Route: 048
     Dates: start: 20080612
  15. PREDNISOLONE [Suspect]
     Route: 048
     Dates: start: 20080620, end: 20080626
  16. PREDNISOLONE [Suspect]
     Route: 048
     Dates: start: 20081104, end: 20081203
  17. TOCILIZUMAB [Suspect]
     Route: 042
     Dates: start: 20081003, end: 20081003
  18. CRESTOR [Concomitant]
     Route: 048
  19. PREDNISOLONE [Suspect]
     Route: 048
     Dates: start: 20080613, end: 20080619
  20. PREDNISOLONE [Suspect]
     Route: 048
     Dates: start: 20080704, end: 20080709

REACTIONS (5)
  - LUNG NEOPLASM MALIGNANT [None]
  - ACUTE TONSILLITIS [None]
  - ARTHRALGIA [None]
  - CEREBRAL INFARCTION [None]
  - PHARYNGITIS [None]
